FAERS Safety Report 20995025 (Version 5)
Quarter: 2023Q1

REPORT INFORMATION
  Report Type: Spontaneous
  Country: US (occurrence: US)
  Receive Date: 20220622
  Receipt Date: 20230131
  Transmission Date: 20230417
  Serious: No
  Sender: FDA-Public Use
  Company Number: US-BRISTOL-MYERS SQUIBB COMPANY-2022-057168

PATIENT
  Age: 71 Year
  Sex: Male

DRUGS (4)
  1. POMALYST [Suspect]
     Active Substance: POMALIDOMIDE
     Indication: Plasma cell myeloma
     Dosage: 7 DAYS OFF
     Route: 048
     Dates: start: 20200221
  2. POMALYST [Suspect]
     Active Substance: POMALIDOMIDE
     Dosage: 1-21 THEN OFF FOR 7 DAYS
     Route: 048
  3. POMALYST [Suspect]
     Active Substance: POMALIDOMIDE
     Route: 048
     Dates: start: 20200221
  4. POMALYST [Suspect]
     Active Substance: POMALIDOMIDE
     Route: 048
     Dates: start: 20200221

REACTIONS (1)
  - Product dose omission issue [Unknown]
